FAERS Safety Report 10183420 (Version 2)
Quarter: 2014Q3

REPORT INFORMATION
  Report Type: Spontaneous
  Country: FR (occurrence: FR)
  Receive Date: 20140520
  Receipt Date: 20140901
  Transmission Date: 20150326
  Serious: Yes (Life-Threatening, Hospitalization, Other)
  Sender: FDA-Public Use
  Company Number: FR-ELI_LILLY_AND_COMPANY-FR201405003684

PATIENT
  Age: 75 Year
  Sex: Male

DRUGS (3)
  1. ALPRAZOLAM. [Suspect]
     Active Substance: ALPRAZOLAM
     Indication: PRODUCT USED FOR UNKNOWN INDICATION
     Dosage: 0.25 MG, UNK
  2. CYMBALTA [Suspect]
     Active Substance: DULOXETINE HYDROCHLORIDE
     Indication: PRODUCT USED FOR UNKNOWN INDICATION
     Dosage: 30 MG, QD
     Route: 065
  3. MIRTAZAPINE. [Suspect]
     Active Substance: MIRTAZAPINE
     Indication: PRODUCT USED FOR UNKNOWN INDICATION
     Dosage: 15 MG, QID

REACTIONS (8)
  - Hypothermia [Recovered/Resolved]
  - Bradycardia [Recovered/Resolved]
  - Confusional state [Recovered/Resolved]
  - Coma [Recovered/Resolved]
  - Miosis [Recovered/Resolved]
  - Hypotension [Recovered/Resolved]
  - Toxicity to various agents [Unknown]
  - Lung disorder [Unknown]

NARRATIVE: CASE EVENT DATE: 20140430
